FAERS Safety Report 8458098-X (Version None)
Quarter: 2012Q2

REPORT INFORMATION
  Report Type: 
  Country: None (occurrence: None)
  Receive Date: 20120622
  Receipt Date: 20120612
  Transmission Date: 20120825
  Serious: Yes (Other)
  Sender: FDA-Public Use
  Company Number: US-JNJFOC-20120410120

PATIENT
  Sex: Female

DRUGS (5)
  1. METHOTREXATE [Concomitant]
     Dates: start: 20120521
  2. REMICADE [Suspect]
     Indication: RHEUMATOID ARTHRITIS
     Route: 042
     Dates: end: 20120302
  3. FOLIC ACID [Concomitant]
  4. FOLIC ACID [Concomitant]
     Dates: start: 20120521
  5. METHOTREXATE [Concomitant]

REACTIONS (4)
  - BASAL CELL CARCINOMA [None]
  - INFECTION [None]
  - EXCORIATION [None]
  - CELLULITIS [None]
